FAERS Safety Report 4520126-1 (Version None)
Quarter: 2004Q4

REPORT INFORMATION
  Report Type: 
  Country: None (occurrence: None)
  Receive Date: 20041207
  Receipt Date: 20041116
  Transmission Date: 20050328
  Serious: Yes (Other)
  Sender: FDA-Public Use
  Company Number: PHBS2004FI15420

PATIENT
  Age: 55 Year
  Sex: Male

DRUGS (7)
  1. XALATAN [Concomitant]
  2. ALPHAGAN [Concomitant]
     Dates: start: 20000101
  3. COSOPT [Concomitant]
     Indication: UVEITIS
  4. VEXOL [Concomitant]
     Indication: UVEITIS
  5. GLEEVEC [Suspect]
     Indication: CHRONIC MYELOID LEUKAEMIA
     Dosage: 400 MG/D
     Route: 048
     Dates: start: 20041027, end: 20041110
  6. PREDNISOLONE [Concomitant]
     Indication: REITER'S SYNDROME
     Dosage: 7.5 MG/D
  7. TREXAN [Concomitant]
     Indication: REITER'S SYNDROME
     Dosage: 15 MG, QW
     Dates: start: 19890101

REACTIONS (17)
  - AFFECT LABILITY [None]
  - APATHY [None]
  - BITE [None]
  - CONTUSION [None]
  - DEPRESSED MOOD [None]
  - DEPRESSION [None]
  - DYSPHONIA [None]
  - EMOTIONAL DISORDER [None]
  - EPILEPSY [None]
  - FATIGUE [None]
  - FEELING ABNORMAL [None]
  - HEADACHE [None]
  - HOARSENESS [None]
  - IRRITABILITY [None]
  - LOSS OF CONSCIOUSNESS [None]
  - TONGUE BITING [None]
  - URINARY INCONTINENCE [None]
